FAERS Safety Report 8615507-0 (Version None)
Quarter: 2012Q3

REPORT INFORMATION
  Report Type: 
  Country: None (occurrence: None)
  Receive Date: 20120823
  Receipt Date: 20120821
  Transmission Date: 20120928
  Serious: Yes (Hospitalization)
  Sender: FDA-Public Use
  Company Number: US-FRI-1000037849

PATIENT
  Age: 85 Year
  Sex: Female

DRUGS (9)
  1. CEFTAROLINE FOSAMIL [Suspect]
     Indication: CELLULITIS
     Route: 042
  2. ASPIRIN [Concomitant]
     Dosage: 81 MG
  3. WARFARIN SODIUM [Suspect]
     Dosage: 2.5 MG
  4. WARFARIN SODIUM [Suspect]
  5. SIMVASTATIN [Concomitant]
     Dosage: 20 MG AT BEDTIME
  6. OMEPRAZOLE [Concomitant]
     Dosage: 20 MG
  7. VENLAFAXINE [Concomitant]
     Dosage: 37.5 MG
  8. CARVEDILOL [Concomitant]
     Dosage: 25 MG
  9. ANASTROZOLE [Concomitant]
     Dosage: 1 MG

REACTIONS (5)
  - INTERNATIONAL NORMALISED RATIO INCREASED [None]
  - DRUG INTERACTION [None]
  - HAEMARTHROSIS [None]
  - WHITE BLOOD CELL COUNT INCREASED [None]
  - HAEMOGLOBIN DECREASED [None]
